FAERS Safety Report 17598747 (Version 4)
Quarter: 2020Q2

REPORT INFORMATION
  Report Type: Report from Study
  Country: KR (occurrence: KR)
  Receive Date: 20200330
  Receipt Date: 20200422
  Transmission Date: 20200713
  Serious: Yes (Hospitalization)
  Sender: FDA-Public Use
  Company Number: KR-ROCHE-2569513

PATIENT
  Age: 61 Year
  Sex: Male
  Weight: 65.7 kg

DRUGS (34)
  1. MINOCIN [Concomitant]
     Active Substance: MINOCYCLINE HYDROCHLORIDE
     Indication: RASH
     Route: 048
     Dates: start: 201906
  2. ULTRACET ER SEMI [Concomitant]
     Indication: OROPHARYNGEAL PAIN
     Dosage: 1 TABLET
     Route: 048
     Dates: start: 201909
  3. EBASTEL [Concomitant]
     Active Substance: EBASTINE
     Indication: PRURITUS
     Route: 048
     Dates: start: 201911
  4. ALMAGEL [ALMAGATE] [Concomitant]
     Active Substance: ALMAGATE
     Indication: GASTRITIS
     Route: 048
     Dates: start: 20200401, end: 20200401
  5. ADIPAM [HYDROXYZINE HYDROCHLORIDE] [Concomitant]
     Active Substance: HYDROXYZINE HYDROCHLORIDE
     Indication: PRURITUS
     Route: 048
     Dates: start: 201911
  6. MIDAZOLAM. [Concomitant]
     Active Substance: MIDAZOLAM
     Indication: PAIN
     Route: 042
     Dates: start: 20200314, end: 20200314
  7. POTASSIUM CHLORIDE. [Concomitant]
     Active Substance: POTASSIUM CHLORIDE
     Indication: HYPOKALAEMIA
     Route: 048
     Dates: start: 20200316, end: 20200318
  8. FEROBA YOU [Concomitant]
     Indication: ANAEMIA
     Route: 048
     Dates: start: 20200324
  9. LANSTON LFDT [Concomitant]
     Active Substance: LANSOPRAZOLE
     Indication: GASTRITIS
     Route: 048
     Dates: start: 201909
  10. MIDAZOLAM. [Concomitant]
     Active Substance: MIDAZOLAM
     Indication: SEDATION
  11. NACL [Concomitant]
     Active Substance: SODIUM CHLORIDE
     Indication: HYPONATRAEMIA
     Route: 042
     Dates: start: 20200314, end: 20200314
  12. THIAMINE. [Concomitant]
     Active Substance: THIAMINE
     Indication: MALNUTRITION
     Route: 042
     Dates: start: 20200314, end: 20200315
  13. TETRACOSACTIDE [Concomitant]
     Active Substance: COSYNTROPIN
     Route: 042
     Dates: start: 20200317, end: 20200317
  14. BEAROBAN [Concomitant]
     Indication: PRURITUS
     Route: 062
     Dates: start: 20200329
  15. EXOPERIN [Concomitant]
     Indication: TUMOUR PAIN
     Route: 048
     Dates: start: 20200401
  16. MAGNESIUM OXIDE. [Concomitant]
     Active Substance: MAGNESIUM OXIDE
     Indication: CONSTIPATION
     Route: 048
     Dates: start: 201906
  17. COUGH SYRUP [AMMONIUM CHLORIDE;CHLORPHENAMINE MALEATE;DIHYDROCODEINE B [Concomitant]
     Indication: PRODUCTIVE COUGH
     Route: 048
     Dates: start: 201906
  18. NAXEN-F [Concomitant]
     Indication: PYREXIA
     Route: 048
     Dates: start: 20200310, end: 20200316
  19. WINUF PERI [Concomitant]
     Active Substance: AMINO ACIDS\DEXTROSE\ELECTROLYTES NOS\SOYBEAN OIL\VITAMINS
     Indication: MALNUTRITION
     Route: 042
     Dates: start: 20200315, end: 20200326
  20. ADIPAM [HYDROXYZINE HYDROCHLORIDE] [Concomitant]
     Active Substance: HYDROXYZINE HYDROCHLORIDE
     Indication: PRURITUS
     Route: 048
     Dates: start: 20200318
  21. MTIG7192A (ANTI-TIGIT MAB) [Suspect]
     Active Substance: TIRAGOLUMAB
     Indication: METASTATIC NEOPLASM
     Dosage: DATE OF MOST RECENT DOSE (1200 MG) OF MTIG7192A PRIOR TO ADVERSE EVENT ONSET: 25/FEB/2020
     Route: 042
     Dates: start: 20200225
  22. MUCOSTA [Concomitant]
     Active Substance: REBAMIPIDE
     Indication: GASTRITIS
     Route: 048
     Dates: start: 201909
  23. ETOMIDATE LIPURO [Concomitant]
     Active Substance: ETOMIDATE
     Indication: PAIN
     Route: 042
     Dates: start: 20200314, end: 20200314
  24. LASIX [Concomitant]
     Active Substance: FUROSEMIDE
     Indication: HYPONATRAEMIA
     Route: 042
     Dates: start: 20200316, end: 20200318
  25. CODEINE [Concomitant]
     Active Substance: CODEINE
     Indication: PRODUCTIVE COUGH
     Route: 048
     Dates: start: 20200317
  26. K-CONTIN [Concomitant]
     Indication: HYPOKALAEMIA
     Route: 048
     Dates: start: 20200319, end: 20200320
  27. CAROL-F [Concomitant]
     Indication: HEADACHE
     Route: 048
     Dates: start: 20200321
  28. PERIDEX [CHLORHEXIDINE GLUCONATE] [Concomitant]
     Indication: MUCOSAL INFLAMMATION
     Route: 062
     Dates: start: 20200331
  29. ATIVAN [Concomitant]
     Active Substance: LORAZEPAM
     Indication: PAIN
     Route: 042
     Dates: start: 20200314, end: 20200314
  30. ETOMIDATE LIPURO [Concomitant]
     Active Substance: ETOMIDATE
     Indication: SEDATION
  31. ATEZOLIZUMAB. [Suspect]
     Active Substance: ATEZOLIZUMAB
     Indication: METASTATIC NEOPLASM
     Dosage: DATE OF MOST RECENT DOSE (1200 MG) OF ATEZOLIZUMAB PRIOR TO ADVERSE EVENT ONSET:25/FEB/2020.
     Route: 041
     Dates: start: 20200225
  32. LYRICA [Concomitant]
     Active Substance: PREGABALIN
     Indication: PERIPHERAL SENSORY NEUROPATHY
     Route: 048
     Dates: start: 201906
  33. ATIVAN [Concomitant]
     Active Substance: LORAZEPAM
     Indication: SEDATION
  34. FURTMAN [Concomitant]
     Indication: MALNUTRITION
     Route: 042
     Dates: start: 20200329, end: 20200329

REACTIONS (1)
  - Meningitis [Recovered/Resolved]

NARRATIVE: CASE EVENT DATE: 20200313
